FAERS Safety Report 7451348-8 (Version None)
Quarter: 2011Q2

REPORT INFORMATION
  Report Type: 
  Country: None (occurrence: None)
  Receive Date: 20110502
  Receipt Date: 20110404
  Transmission Date: 20111010
  Serious: No
  Sender: FDA-Public Use
  Company Number: US-BAYER-2011-036246

PATIENT
  Sex: Female

DRUGS (2)
  1. LEVONORGESTREL [Suspect]
     Indication: POST COITAL CONTRACEPTION
     Dosage: 1.5 MG, NA
     Route: 048
  2. YAZ [Suspect]
     Indication: CONTRACEPTION
     Dosage: UNK
     Route: 048

REACTIONS (1)
  - AMENORRHOEA [None]
